FAERS Safety Report 10966501 (Version 1)
Quarter: 2015Q1

REPORT INFORMATION
  Report Type: Report from Study
  Country: CA (occurrence: CA)
  Receive Date: 20150330
  Receipt Date: 20150330
  Transmission Date: 20150721
  Serious: Yes (Other)
  Sender: FDA-Public Use
  Company Number: CA-JNJFOC-20150220776

PATIENT
  Age: 57 Year
  Sex: Female
  Weight: 42.2 kg

DRUGS (10)
  1. GABAPENTINE [Concomitant]
     Active Substance: GABAPENTIN
     Route: 065
  2. TECTA [Concomitant]
     Active Substance: PANTOPRAZOLE MAGNESIUM
     Route: 065
  3. ACLASTA [Concomitant]
     Active Substance: ZOLEDRONIC ACID
     Route: 065
  4. REMICADE [Suspect]
     Active Substance: INFLIXIMAB
     Indication: CROHN^S DISEASE
     Route: 042
     Dates: start: 20131103
  5. FENTANYL TRANSDERMAL SYSTEM [Concomitant]
     Active Substance: FENTANYL
     Route: 065
  6. IRON [Concomitant]
     Active Substance: IRON
     Route: 065
  7. CRESTOR [Concomitant]
     Active Substance: ROSUVASTATIN CALCIUM
     Route: 065
  8. REMICADE [Suspect]
     Active Substance: INFLIXIMAB
     Indication: CROHN^S DISEASE
     Route: 042
     Dates: start: 20130326
  9. PLAVIX [Concomitant]
     Active Substance: CLOPIDOGREL BISULFATE
     Route: 065
  10. VITAMIN B12 [Concomitant]
     Active Substance: CYANOCOBALAMIN
     Route: 065

REACTIONS (6)
  - Abdominal pain [Unknown]
  - Multiple sclerosis [Unknown]
  - Nausea [Unknown]
  - Arthralgia [Unknown]
  - Intestinal resection [Unknown]
  - Headache [Unknown]

NARRATIVE: CASE EVENT DATE: 201502
